FAERS Safety Report 4684456-5 (Version None)
Quarter: 2005Q2

REPORT INFORMATION
  Report Type: 
  Country: None (occurrence: None)
  Receive Date: 20050607
  Receipt Date: 20041021
  Transmission Date: 20051028
  Serious: Yes (Death, Hospitalization)
  Sender: FDA-Public Use
  Company Number: PHRM2004FR03150

PATIENT
  Age: 75 Year
  Sex: Male

DRUGS (1)
  1. NEORAL [Suspect]
     Indication: HEART TRANSPLANT
     Route: 048
     Dates: start: 19900615, end: 20041004

REACTIONS (6)
  - B-CELL LYMPHOMA RECURRENT [None]
  - EPSTEIN-BARR VIRUS INFECTION [None]
  - FEBRILE BONE MARROW APLASIA [None]
  - GENERAL PHYSICAL HEALTH DETERIORATION [None]
  - NON-HODGKIN'S LYMPHOMA [None]
  - RENAL FAILURE [None]
